FAERS Safety Report 6133241-6 (Version None)
Quarter: 2009Q1

REPORT INFORMATION
  Report Type: 
  Country: None (occurrence: None)
  Receive Date: 20090326
  Receipt Date: 20090319
  Transmission Date: 20090719
  Serious: Yes (Other)
  Sender: FDA-Public Use
  Company Number: US-SOLVAY-00209001575

PATIENT
  Age: 15504 Day
  Sex: Male
  Weight: 104.5 kg

DRUGS (4)
  1. KEPPRA [Concomitant]
     Indication: CONVULSION
     Dosage: DAILY DOSE:  UNKNOWN
     Route: 048
  2. ANDROGEL [Suspect]
     Indication: DRUG USE FOR UNKNOWN INDICATION
     Dosage: DAILY DOSE: 5 GRAM(S)
     Route: 062
     Dates: start: 20090313, end: 20090319
  3. DEPAKOTE [Concomitant]
     Indication: CONVULSION
     Dosage: DAILY DOSE:  UNKNOWN
     Route: 048
  4. BENICAR HCT [Suspect]
     Indication: HYPERTENSION
     Dosage: DAILY DOSE:  UNKNOWN
     Route: 048
     Dates: start: 20090313

REACTIONS (1)
  - CONVULSION [None]
